FAERS Safety Report 18372482 (Version 2)
Quarter: 2020Q4

REPORT INFORMATION
  Report Type: Spontaneous
  Country: US (occurrence: US)
  Receive Date: 20201012
  Receipt Date: 20201019
  Transmission Date: 20210114
  Serious: No
  Sender: FDA-Public Use
  Company Number: US-PFIZER INC-2020390962

PATIENT
  Age: 43 Year
  Sex: Female

DRUGS (1)
  1. LEVOXYL [Suspect]
     Active Substance: LEVOTHYROXINE SODIUM
     Dosage: 125 MG

REACTIONS (5)
  - Headache [Unknown]
  - Feeling abnormal [Unknown]
  - Dysphagia [Unknown]
  - Sinus disorder [Unknown]
  - Product prescribing error [Unknown]
